FAERS Safety Report 7217946-1 (Version None)
Quarter: 2011Q1

REPORT INFORMATION
  Report Type: 
  Country: None (occurrence: None)
  Receive Date: 20110110
  Receipt Date: 20110103
  Transmission Date: 20110831
  Serious: No
  Sender: FDA-Public Use
  Company Number: A0899720A

PATIENT
  Age: 41 Year
  Sex: Female

DRUGS (8)
  1. SINGULAIR [Concomitant]
  2. NEURONTIN [Concomitant]
  3. LAMICTAL [Suspect]
     Indication: MIGRAINE
     Dosage: 300MG AT NIGHT
     Route: 048
     Dates: start: 20100401
  4. LAMOTRIGINE [Suspect]
     Indication: MIGRAINE
     Dosage: 200MG PER DAY
     Route: 048
  5. ZOMIG [Concomitant]
  6. WELLBUTRIN SR [Concomitant]
  7. ENJUVIA [Concomitant]
     Indication: HORMONE REPLACEMENT THERAPY
  8. EFFEXOR XR [Concomitant]

REACTIONS (7)
  - SOMNOLENCE [None]
  - IMPAIRED DRIVING ABILITY [None]
  - MIGRAINE [None]
  - OFF LABEL USE [None]
  - PERFORMANCE STATUS DECREASED [None]
  - DRUG INEFFECTIVE [None]
  - PRODUCT QUALITY ISSUE [None]
